FAERS Safety Report 15384413 (Version 1)
Quarter: 2018Q3

REPORT INFORMATION
  Report Type: Spontaneous
  Country: IT (occurrence: IT)
  Receive Date: 20180914
  Receipt Date: 20180914
  Transmission Date: 20181010
  Serious: Yes (Disabling)
  Sender: FDA-Public Use
  Company Number: IT-TEVA-2018-IT-954365

PATIENT
  Age: 42 Year
  Sex: Female
  Weight: 50 kg

DRUGS (1)
  1. LEVOFLOXACIN. [Suspect]
     Active Substance: LEVOFLOXACIN
     Indication: NEPHRITIS
     Dosage: 500 MILLIGRAM DAILY;
     Route: 048
     Dates: start: 20131023, end: 20131105

REACTIONS (4)
  - Fibromyalgia [Recovering/Resolving]
  - Acute polyneuropathy [Recovering/Resolving]
  - Migraine [Recovering/Resolving]
  - Muscle spasms [Recovering/Resolving]

NARRATIVE: CASE EVENT DATE: 20131023
